APPROVED DRUG PRODUCT: ZOCOR
Active Ingredient: SIMVASTATIN
Strength: 5MG
Dosage Form/Route: TABLET;ORAL
Application: N019766 | Product #001 | TE Code: AB
Applicant: ORGANON LLC A SUB OF ORGANON AND CO
Approved: Dec 23, 1991 | RLD: Yes | RS: No | Type: RX